FAERS Safety Report 5248107-3 (Version None)
Quarter: 2007Q1

REPORT INFORMATION
  Report Type: 
  Country: None (occurrence: None)
  Receive Date: 20070227
  Receipt Date: 20070219
  Transmission Date: 20070707
  Serious: Yes (Hospitalization)
  Sender: FDA-Public Use
  Company Number: JP-GLAXOSMITHKLINE-B0459774A

PATIENT
  Age: 54 Year
  Sex: Male

DRUGS (5)
  1. CEFAZOLIN [Suspect]
     Indication: STAPHYLOCOCCAL INFECTION
     Route: 042
     Dates: start: 20070126, end: 20070213
  2. ASPIRIN [Concomitant]
     Route: 048
  3. ARTIST [Concomitant]
  4. LOXONIN [Concomitant]
  5. MUCOSTA [Concomitant]
     Route: 048

REACTIONS (2)
  - CHILLS [None]
  - PYREXIA [None]
